FAERS Safety Report 6049092-7 (Version None)
Quarter: 2009Q1

REPORT INFORMATION
  Report Type: 
  Country: None (occurrence: None)
  Receive Date: 20090123
  Receipt Date: 20090115
  Transmission Date: 20090719
  Serious: Yes (Death, Life-Threatening, Hospitalization, Other)
  Sender: FDA-Public Use
  Company Number: IT-ABBOTT-08P-083-0485579-00

PATIENT
  Sex: Male
  Weight: 90 kg

DRUGS (3)
  1. HUMIRA [Suspect]
     Indication: PYODERMA GANGRENOSUM
     Route: 058
     Dates: start: 20071001, end: 20080317
  2. SANDIMMUNE [Suspect]
     Indication: PYODERMA GANGRENOSUM
     Route: 048
     Dates: start: 20051110, end: 20080317
  3. DAPSONE [Concomitant]
     Indication: DRUG USE FOR UNKNOWN INDICATION
     Route: 048
     Dates: start: 20080301

REACTIONS (7)
  - AORTIC THROMBOSIS [None]
  - BREAST CANCER METASTATIC [None]
  - LUNG NEOPLASM MALIGNANT [None]
  - METASTASES TO ADRENALS [None]
  - METASTASES TO KIDNEY [None]
  - METASTASES TO LYMPH NODES [None]
  - PERICARDIAL EFFUSION [None]
